FAERS Safety Report 11123430 (Version 2)
Quarter: 2015Q2

REPORT INFORMATION
  Report Type: Spontaneous
  Country: US (occurrence: US)
  Receive Date: 20150519
  Receipt Date: 20150616
  Transmission Date: 20150821
  Serious: Yes (Hospitalization, Other)
  Sender: FDA-Public Use
  Company Number: US-009507513-1201USA00332

PATIENT
  Sex: Female
  Weight: 65.31 kg

DRUGS (6)
  1. FOSAMAX [Suspect]
     Active Substance: ALENDRONATE SODIUM
     Indication: BONE DENSITY DECREASED
     Dosage: 70 MG, QW
     Route: 048
     Dates: start: 20031231
  2. FOSAMAX [Suspect]
     Active Substance: ALENDRONATE SODIUM
     Route: 048
  3. TAMOXIFEN [Concomitant]
     Active Substance: TAMOXIFEN
  4. SERZONE [Concomitant]
     Active Substance: NEFAZODONE HYDROCHLORIDE
  5. LIBRAX CAPSULES [Concomitant]
  6. FOSAMAX [Suspect]
     Active Substance: ALENDRONATE SODIUM
     Indication: OSTEOPENIA
     Dosage: UNK
     Route: 048
     Dates: start: 19981201

REACTIONS (30)
  - Presbyopia [Unknown]
  - Atrial tachycardia [Unknown]
  - Atrial fibrillation [Unknown]
  - Anaemia [Unknown]
  - Malnutrition [Unknown]
  - Abdominal discomfort [Unknown]
  - Pneumonia [Unknown]
  - Pneumonia aspiration [Unknown]
  - Knee arthroplasty [Unknown]
  - Hyperlipidaemia [Unknown]
  - Osteoarthritis [Unknown]
  - Respiratory tract infection [Unknown]
  - Hyponatraemia [Unknown]
  - Femur fracture [Unknown]
  - Respiratory failure [Unknown]
  - Anaemia postoperative [Unknown]
  - Irritable bowel syndrome [Unknown]
  - Facial bones fracture [Unknown]
  - Intramedullary rod insertion [Unknown]
  - Staphylococcus test positive [Unknown]
  - Hypertension [Unknown]
  - Electrolyte imbalance [Unknown]
  - Cardiac failure congestive [Unknown]
  - Acute kidney injury [Unknown]
  - Astigmatism [Unknown]
  - Hypothyroidism [Unknown]
  - Ligament disorder [Unknown]
  - Asthma [Unknown]
  - Transfusion-related acute lung injury [Unknown]
  - Fall [Unknown]

NARRATIVE: CASE EVENT DATE: 19981201
